FAERS Safety Report 4304235-8 (Version None)
Quarter: 2004Q1

REPORT INFORMATION
  Report Type: 
  Country: None (occurrence: None)
  Receive Date: 20040225
  Receipt Date: 20040213
  Transmission Date: 20041129
  Serious: Yes (Hospitalization)
  Sender: FDA-Public Use
  Company Number: WAES 0402AUS00120

PATIENT
  Age: 64 Year
  Sex: Male

DRUGS (4)
  1. ASPIRIN [Concomitant]
  2. ATENOLOL [Concomitant]
  3. CLOBAZAM [Concomitant]
  4. ZOCOR [Suspect]
     Route: 048

REACTIONS (2)
  - CHOLELITHIASIS [None]
  - MYALGIA [None]
